FAERS Safety Report 19761240 (Version 1)
Quarter: 2021Q3

REPORT INFORMATION
  Report Type: Spontaneous
  Country: US (occurrence: US)
  Receive Date: 20210830
  Receipt Date: 20210830
  Transmission Date: 20211014
  Serious: No
  Sender: FDA-Public Use
  Company Number: US-009507513-2108USA007350

PATIENT
  Sex: Female
  Weight: 75.28 kg

DRUGS (11)
  1. IRON [Concomitant]
     Active Substance: IRON
  2. FLUCONAZOLE. [Concomitant]
     Active Substance: FLUCONAZOLE
  3. KEYTRUDA [Suspect]
     Active Substance: PEMBROLIZUMAB
     Dosage: STRENGTH: 100 MG/4 ML
  4. CLOTRIMAZOLE. [Concomitant]
     Active Substance: CLOTRIMAZOLE
  5. MULTIVITAMINUM [Concomitant]
     Active Substance: VITAMINS
  6. VITAMIN B12 [Concomitant]
     Active Substance: CYANOCOBALAMIN
  7. OMEPRAZOLE. [Concomitant]
     Active Substance: OMEPRAZOLE
  8. ELIQUIS [Concomitant]
     Active Substance: APIXABAN
     Dosage: UNK
     Route: 048
  9. LENVATINIB MESYLATE [Suspect]
     Active Substance: LENVATINIB MESYLATE
     Dosage: 20 MG, DAILY (2 X 10 MG, DAILY)
     Route: 048
     Dates: start: 20200717
  10. CITALOPRAM [Concomitant]
     Active Substance: CITALOPRAM HYDROBROMIDE
  11. TERCONAZOLE. [Concomitant]
     Active Substance: TERCONAZOLE

REACTIONS (1)
  - Urinary tract infection [Unknown]
